FAERS Safety Report 5732018-0 (Version None)
Quarter: 2008Q2

REPORT INFORMATION
  Report Type: 
  Country: None (occurrence: None)
  Receive Date: 20080508
  Receipt Date: 20080505
  Transmission Date: 20081010
  Serious: Yes (Hospitalization)
  Sender: FDA-Public Use
  Company Number: PH-ASTRAZENECA-2008AP03432

PATIENT
  Age: 75 Year
  Sex: Female

DRUGS (3)
  1. FASLODEX [Suspect]
     Indication: BREAST CANCER
     Dosage: FIRST DOSE
     Route: 030
     Dates: start: 20080425
  2. DIAMICRON [Concomitant]
     Indication: DIABETES MELLITUS
  3. TAPAZOLE [Concomitant]
     Indication: HYPERTHYROIDISM

REACTIONS (1)
  - GASTROINTESTINAL HAEMORRHAGE [None]
